FAERS Safety Report 6083043-4 (Version None)
Quarter: 2009Q1

REPORT INFORMATION
  Report Type: 
  Country: None (occurrence: None)
  Receive Date: 20090218
  Receipt Date: 20090211
  Transmission Date: 20090719
  Serious: Yes (Death, Life-Threatening, Hospitalization)
  Sender: FDA-Public Use
  Company Number: CA-ABBOTT-09P-028-0502977-00

PATIENT
  Sex: Male
  Weight: 70.37 kg

DRUGS (14)
  1. LUPRON DEPOT [Suspect]
     Indication: PROSTATE CANCER
     Route: 050
     Dates: start: 20020814, end: 20081127
  2. BICALUTAMIDE [Concomitant]
     Indication: PROSTATIC DISORDER
     Dosage: 1 TAB EVERY DAY
     Route: 048
     Dates: start: 20020101
  3. AMIODARONE [Concomitant]
     Indication: HEART RATE IRREGULAR
     Route: 048
     Dates: start: 20030101
  4. PLAVIX [Concomitant]
     Indication: DRUG USE FOR UNKNOWN INDICATION
     Dosage: 1 TAB EVERY DAY
     Route: 048
     Dates: start: 20030101
  5. LIPITOR [Concomitant]
     Indication: DRUG USE FOR UNKNOWN INDICATION
     Dosage: 1 TAB EVERY DAY
     Route: 048
     Dates: start: 20030101
  6. GLYBURIDE [Concomitant]
     Indication: DRUG USE FOR UNKNOWN INDICATION
     Dosage: TWO TABLETS IN AM
     Route: 048
     Dates: start: 19730101
  7. RAMIPRIL [Concomitant]
     Indication: DRUG USE FOR UNKNOWN INDICATION
     Route: 048
     Dates: start: 20030101
  8. EURO-FER [Concomitant]
     Indication: DRUG USE FOR UNKNOWN INDICATION
     Route: 048
     Dates: start: 20070601
  9. EURO-FER [Concomitant]
  10. LOSEC [Concomitant]
     Indication: GASTROOESOPHAGEAL REFLUX DISEASE
     Route: 048
     Dates: start: 20030101
  11. FUROSEMIDE [Concomitant]
     Indication: CARDIAC FAILURE CONGESTIVE
     Route: 048
     Dates: start: 20030101
  12. FUROSEMIDE [Concomitant]
     Route: 048
  13. SOFLAX [Concomitant]
     Indication: CONSTIPATION PROPHYLAXIS
     Route: 048
  14. NOVOLIN GE NPH [Concomitant]
     Indication: DIABETES MELLITUS
     Dosage: 14 U IN AM, 4 U AT BEDTIME
     Route: 058
     Dates: start: 20060101

REACTIONS (2)
  - CHOLELITHIASIS [None]
  - JAUNDICE [None]
